FAERS Safety Report 6531322-6 (Version None)
Quarter: 2009Q4

REPORT INFORMATION
  Report Type: 
  Country: None (occurrence: None)
  Receive Date: 20091222
  Receipt Date: 20091113
  Transmission Date: 20100525
  Serious: No
  Sender: FDA-Public Use
  Company Number: ALL1-2009-03663

PATIENT
  Age: 9 Year
  Sex: Male

DRUGS (2)
  1. VYVANSE [Suspect]
     Indication: ATTENTION DEFICIT/HYPERACTIVITY DISORDER
     Dosage: 30 MG, 1X/DAY:QD, ORAL
     Route: 048
  2. VYVANSE [Suspect]
     Indication: AUTISM
     Dosage: 30 MG, 1X/DAY:QD, ORAL
     Route: 048

REACTIONS (2)
  - DRUG CLEARANCE INCREASED [None]
  - DRUG EFFECT DECREASED [None]
